FAERS Safety Report 20757751 (Version 4)
Quarter: 2022Q2

REPORT INFORMATION
  Report Type: Spontaneous
  Country: KR (occurrence: KR)
  Receive Date: 20220427
  Receipt Date: 20220518
  Transmission Date: 20220720
  Serious: Yes (Other)
  Sender: FDA-Public Use
  Company Number: KR-NOVARTISPH-NVSC2022KR095197

PATIENT
  Age: 71 Year
  Sex: Male

DRUGS (2)
  1. BROLUCIZUMAB [Suspect]
     Active Substance: BROLUCIZUMAB
     Indication: Age-related macular degeneration
     Dosage: RIGHT EYE (FIRST INJECTION)
     Route: 031
  2. BROLUCIZUMAB [Suspect]
     Active Substance: BROLUCIZUMAB
     Dosage: RIGHT EYE (SECOND AFTER 2 MONTHS OF FIRST INJECTION)
     Route: 031

REACTIONS (4)
  - Neovascular age-related macular degeneration [Unknown]
  - Blindness transient [Recovering/Resolving]
  - Choroidal effusion [Recovered/Resolved]
  - Anterior chamber cell [Unknown]
